FAERS Safety Report 7547816-0 (Version None)
Quarter: 2011Q2

REPORT INFORMATION
  Report Type: 
  Country: None (occurrence: None)
  Receive Date: 20110615
  Receipt Date: 20110602
  Transmission Date: 20111010
  Serious: Yes (Other)
  Sender: FDA-Public Use
  Company Number: US-BIOGENIDEC-2011BI019462

PATIENT
  Age: 64 Year
  Sex: Female

DRUGS (1)
  1. TYSABRI [Suspect]
     Indication: MULTIPLE SCLEROSIS
     Route: 042
     Dates: start: 20090226

REACTIONS (5)
  - VENTRICULAR EXTRASYSTOLES [None]
  - DRUG INEFFECTIVE [None]
  - TACHYCARDIA [None]
  - MULTIPLE SCLEROSIS RELAPSE [None]
  - CENTRAL NERVOUS SYSTEM LESION [None]
